FAERS Safety Report 14605246 (Version 1)
Quarter: 2018Q1

REPORT INFORMATION
  Report Type: Other
  Country: US (occurrence: US)
  Receive Date: 20180306
  Receipt Date: 20180306
  Transmission Date: 20180509
  Serious: Yes (Hospitalization)
  Sender: FDA-Public Use
  Company Number: US-WALMART-2043085

PATIENT
  Age: 13 Year
  Sex: Male

DRUGS (1)
  1. EQUATE 3% HYDROGEN PEROXIDE [Suspect]
     Active Substance: HYDROGEN PEROXIDE

REACTIONS (3)
  - Pallor [Recovered/Resolved]
  - Skin burning sensation [Recovered/Resolved]
  - Accidental exposure to product by child [None]

NARRATIVE: CASE EVENT DATE: 20180225
